FAERS Safety Report 5044068-0 (Version None)
Quarter: 2006Q2

REPORT INFORMATION
  Report Type: 
  Country: None (occurrence: None)
  Receive Date: 20060629
  Receipt Date: 20060619
  Transmission Date: 20061013
  Serious: Yes (Other)
  Sender: FDA-Public Use
  Company Number: CHNY2006DE01680

PATIENT
  Age: 65 Year
  Sex: Female

DRUGS (4)
  1. SCOPODERM TTS [Suspect]
     Indication: PROPHYLAXIS AGAINST MOTION SICKNESS
     Dosage: TRANSDERMAL
     Route: 062
     Dates: start: 20051101, end: 20051101
  2. OLMESARTAN MEDOXOMIL               (OLMESARTAN MEDOXOMIL) [Concomitant]
  3. BELOC-ZOC FORTE               (METOPROLOL SUCCINATE) [Concomitant]
  4. LIPIDIL [Concomitant]

REACTIONS (2)
  - BALANCE DISORDER [None]
  - DIZZINESS [None]
